FAERS Safety Report 5740685-0 (Version None)
Quarter: 2008Q2

REPORT INFORMATION
  Report Type: 
  Country: None (occurrence: None)
  Receive Date: 20080516
  Receipt Date: 20080507
  Transmission Date: 20081010
  Serious: Yes (Other)
  Sender: FDA-Public Use
  Company Number: AU-SANOFI-SYNTHELABO-A01200804052

PATIENT
  Age: 30 Year
  Sex: Male

DRUGS (2)
  1. ALCOHOL [Concomitant]
     Dosage: UNK
     Route: 048
  2. ZOLPIDEM TARTRATE [Suspect]
     Indication: INSOMNIA
     Dosage: UNK
     Route: 065
     Dates: start: 20070201

REACTIONS (10)
  - ABNORMAL BEHAVIOUR [None]
  - AMNESIA [None]
  - BALANCE DISORDER [None]
  - BLOOD ALCOHOL INCREASED [None]
  - DYSARTHRIA [None]
  - HALLUCINATION [None]
  - IMPAIRED DRIVING ABILITY [None]
  - ROAD TRAFFIC ACCIDENT [None]
  - SLEEP TALKING [None]
  - SOMNAMBULISM [None]
